FAERS Safety Report 4353120-4 (Version None)
Quarter: 2004Q2

REPORT INFORMATION
  Report Type: 
  Country: None (occurrence: None)
  Receive Date: 20040429
  Receipt Date: 20040419
  Transmission Date: 20050107
  Serious: Yes (Life-Threatening)
  Sender: FDA-Public Use
  Company Number: 2004AP02285

PATIENT
  Age: 14 Year
  Sex: Male
  Weight: 62 kg

DRUGS (1)
  1. MARCAINE [Suspect]
     Indication: THERAPEUTIC PROCEDURE
     Dosage: 2.8 IT
     Route: 038
     Dates: start: 20031120, end: 20031120

REACTIONS (4)
  - APNOEA [None]
  - CARDIAC ARREST [None]
  - HYPOTENSION [None]
  - MUSCLE SPASMS [None]
